FAERS Safety Report 22188592 (Version 1)
Quarter: 2023Q2

REPORT INFORMATION
  Report Type: Spontaneous
  Country: CN (occurrence: CN)
  Receive Date: 20230409
  Receipt Date: 20230409
  Transmission Date: 20230721
  Serious: Yes (Death)
  Sender: FDA-Public Use
  Company Number: CN-STRIDES ARCOLAB LIMITED-2023SP004806

PATIENT
  Age: 23 Year
  Sex: Female

DRUGS (3)
  1. ETOPOSIDE [Suspect]
     Active Substance: ETOPOSIDE
     Indication: Ovarian germ cell endodermal sinus tumour
     Dosage: 250 MILLIGRAM/SQ. METER/DAY, CYCLICAL, BEP REGIMEN; ON DAYS 1-5, THE CYCLES REPEATED EVERY 3 WEEKS F
     Route: 065
  2. CISPLATIN [Suspect]
     Active Substance: CISPLATIN
     Indication: Ovarian germ cell endodermal sinus tumour
     Dosage: 20 MILLIGRAM/SQ. METER/DAY, CYCLICAL, BEP REGIMEN; ON DAYS 1-5, THE CYCLES REPEATED EVERY 3 WEEKS FO
     Route: 065
  3. BLEOMYCIN [Suspect]
     Active Substance: BLEOMYCIN SULFATE
     Indication: Ovarian germ cell endodermal sinus tumour
     Dosage: 15 MILLIGRAM/DAY, CYCLICAL, BEP REGIMEN; ON DAYS 1-3, THE CYCLES REPEATED EVERY 3 WEEKS FOR 6 CYCLES
     Route: 065

REACTIONS (2)
  - Leukaemia [Fatal]
  - Off label use [Unknown]
